FAERS Safety Report 26110583 (Version 1)
Quarter: 2025Q4

REPORT INFORMATION
  Report Type: Spontaneous
  Country: US (occurrence: US)
  Receive Date: 20251202
  Receipt Date: 20251202
  Transmission Date: 20260117
  Serious: No
  Sender: HIKMA
  Company Number: HIKM2410543

PATIENT
  Age: 46 Year
  Sex: Male

DRUGS (1)
  1. LITHIUM [Suspect]
     Active Substance: LITHIUM
     Indication: Schizophrenia
     Dosage: UNKNOWN
     Route: 065

REACTIONS (2)
  - Delusion [Unknown]
  - Drug ineffective [Unknown]
